FAERS Safety Report 5181936-3 (Version None)
Quarter: 2006Q4

REPORT INFORMATION
  Report Type: 
  Country: None (occurrence: None)
  Receive Date: 20061220
  Receipt Date: 20060403
  Transmission Date: 20070319
  Serious: No
  Sender: FDA-Public Use
  Company Number: US-GLAXOSMITHKLINE-A0600027A

PATIENT
  Age: 58 Year
  Sex: Female

DRUGS (10)
  1. COMMIT [Suspect]
  2. PAMELOR [Concomitant]
  3. KLONOPIN [Concomitant]
  4. TOPAMAX [Concomitant]
  5. LEVOXYL [Concomitant]
  6. MIRAPEX [Concomitant]
  7. PRILOSEC [Concomitant]
  8. AZMACORT [Concomitant]
  9. ALBUTEROL [Concomitant]
  10. INDERAL [Concomitant]

REACTIONS (1)
  - DYSURIA [None]
